FAERS Safety Report 6501258-5 (Version None)
Quarter: 2009Q4

REPORT INFORMATION
  Report Type: 
  Country: None (occurrence: None)
  Receive Date: 20091216
  Receipt Date: 20091207
  Transmission Date: 20100525
  Serious: Yes (Hospitalization)
  Sender: FDA-Public Use
  Company Number: ES-PFIZER INC-2009307396

PATIENT
  Sex: Female

DRUGS (2)
  1. TOVIAZ [Suspect]
     Dosage: 4 MG, 2X/DAY
     Dates: start: 20090101
  2. DALACIN [Suspect]
     Dosage: UNK
     Dates: start: 20090101

REACTIONS (4)
  - BLADDER IRRITATION [None]
  - FALL [None]
  - OEDEMA PERIPHERAL [None]
  - RASH [None]
